FAERS Safety Report 24799924 (Version 3)
Quarter: 2025Q1

REPORT INFORMATION
  Report Type: Spontaneous
  Country: CA (occurrence: CA)
  Receive Date: 20250102
  Receipt Date: 20250227
  Transmission Date: 20250409
  Serious: Yes (Other)
  Sender: PFIZER
  Company Number: CA-PFIZER INC-202400084410

PATIENT
  Age: 60 Year
  Sex: Female

DRUGS (12)
  1. RUXIENCE [Suspect]
     Active Substance: RITUXIMAB-PVVR
     Indication: Granulomatosis with polyangiitis
     Dosage: 738 MG, WEEKLY (FOR 4 DOSES)
     Route: 042
     Dates: start: 20240109, end: 20240130
  2. RUXIENCE [Suspect]
     Active Substance: RITUXIMAB-PVVR
     Route: 042
     Dates: start: 20240717, end: 20240717
  3. RUXIENCE [Suspect]
     Active Substance: RITUXIMAB-PVVR
     Route: 042
     Dates: start: 20250128
  4. AMLODIPINE [Concomitant]
     Active Substance: AMLODIPINE BESYLATE
  5. COVID-19 VACCINE [Concomitant]
     Indication: COVID-19 immunisation
     Dates: start: 20241219, end: 20241219
  6. INDAPAMIDE [Concomitant]
     Active Substance: INDAPAMIDE
  7. IMURAN [Concomitant]
     Active Substance: AZATHIOPRINE
  8. LETROZOLE [Concomitant]
     Active Substance: LETROZOLE
  9. PANTOPRAZOLE [Concomitant]
     Active Substance: PANTOPRAZOLE
  10. PREDNISONE [Concomitant]
     Active Substance: PREDNISONE
  11. SULFADIAZINE\TRIMETHOPRIM [Concomitant]
     Active Substance: SULFADIAZINE\TRIMETHOPRIM
  12. ZOMETA [Concomitant]
     Active Substance: ZOLEDRONIC ACID

REACTIONS (4)
  - Dental caries [Unknown]
  - Off label use [Unknown]
  - Feeling hot [Recovered/Resolved]
  - Hot flush [Recovered/Resolved]

NARRATIVE: CASE EVENT DATE: 20240101
